FAERS Safety Report 4683558-7 (Version None)
Quarter: 2005Q2

REPORT INFORMATION
  Report Type: 
  Country: None (occurrence: None)
  Receive Date: 20050602
  Receipt Date: 20050207
  Transmission Date: 20051028
  Serious: Yes (Life-Threatening, Hospitalization)
  Sender: FDA-Public Use
  Company Number: USA050290163

PATIENT
  Sex: Female

DRUGS (4)
  1. CYMBALTA [Suspect]
     Indication: DEPRESSION
     Dosage: 60 MG DAY
     Dates: start: 20041201, end: 20050101
  2. LAMICTAL [Concomitant]
  3. SERZONE [Concomitant]
  4. XANAX(ALPRAZOLAM DUM) [Concomitant]

REACTIONS (2)
  - AFFECT LABILITY [None]
  - SUICIDE ATTEMPT [None]
